FAERS Safety Report 14994476 (Version 1)
Quarter: 2018Q2

REPORT INFORMATION
  Report Type: Spontaneous
  Country: US (occurrence: US)
  Receive Date: 20180521
  Receipt Date: 20180521
  Transmission Date: 20180711
  Serious: Yes (Other)
  Sender: FDA-Public Use
  Company Number: None

PATIENT
  Age: 62 Year
  Sex: Female
  Weight: 75.6 kg

DRUGS (8)
  1. VITAMIN B12 [Concomitant]
     Active Substance: CYANOCOBALAMIN
  2. MULT VITAMIN [Concomitant]
  3. VITAMIN D3 [Concomitant]
     Active Substance: CHOLECALCIFEROL
  4. GENERIC PRODUCT FOR XOPENEX [Suspect]
     Active Substance: LEVALBUTEROL HYDROCHLORIDE
     Indication: CHRONIC OBSTRUCTIVE PULMONARY DISEASE
     Dosage: ?          QUANTITY:1 INHALATION(S);?
     Route: 055
     Dates: start: 20120308, end: 20120630
  5. NEBULIZER [Concomitant]
     Active Substance: DEVICE
  6. TENS UNIT [Concomitant]
  7. GENERIC PRODUCT FOR XOPENEX [Suspect]
     Active Substance: LEVALBUTEROL HYDROCHLORIDE
     Indication: ASTHMA
     Dosage: ?          QUANTITY:1 INHALATION(S);?
     Route: 055
     Dates: start: 20120308, end: 20120630
  8. 81 MG ASPIRIN [Concomitant]
     Active Substance: ASPIRIN

REACTIONS (3)
  - Tremor [None]
  - Nervousness [None]
  - Product substitution issue [None]

NARRATIVE: CASE EVENT DATE: 20120308
